FAERS Safety Report 4832620-4 (Version None)
Quarter: 2005Q4

REPORT INFORMATION
  Report Type: 
  Country: None (occurrence: None)
  Receive Date: 20051121
  Receipt Date: 20051110
  Transmission Date: 20060501
  Serious: Yes (Hospitalization)
  Sender: FDA-Public Use
  Company Number: ES-JNJFOC-20050704165

PATIENT
  Age: 41 Year
  Sex: Male
  Weight: 70 kg

DRUGS (4)
  1. REMICADE [Suspect]
     Indication: ANKYLOSING SPONDYLITIS
     Dosage: 9 INFUSIONS
     Route: 042
  2. METHOTREXATE [Concomitant]
     Route: 065
     Dates: start: 20020129, end: 20050331
  3. INDOMETHACIN [Concomitant]
     Dosage: 75-150MG
     Route: 065
     Dates: start: 19960101
  4. OMEPRAZOLE [Concomitant]
     Route: 065
     Dates: start: 19960101

REACTIONS (1)
  - PULMONARY TUBERCULOSIS [None]
